FAERS Safety Report 23967111 (Version 1)
Quarter: 2024Q2

REPORT INFORMATION
  Report Type: Spontaneous
  Country: US (occurrence: None)
  Receive Date: 20240611
  Receipt Date: 20240611
  Transmission Date: 20240716
  Serious: Yes (Hospitalization)
  Sender: FDA-Public Use
  Company Number: None

PATIENT
  Sex: Male

DRUGS (10)
  1. VIGABATRIN [Suspect]
     Active Substance: VIGABATRIN
     Dosage: OTHER QUANTITY : 2 PACKETS;?FREQUENCY : TWICE A DAY;?DISSOLVE CONTENTS OF 2 PACKETS IN 20 ML OF WATE
     Route: 048
     Dates: start: 20220315
  2. ACID REDUCER [Concomitant]
  3. ERYYHTOMUVIN [Concomitant]
  4. FERROUS SULF SOL [Concomitant]
  5. LACTULOSE [Concomitant]
  6. OXCARBAZEPINE [Concomitant]
     Active Substance: OXCARBAZEPINE
  7. PEPCID CHW [Concomitant]
  8. FERROUS SULFATE [Concomitant]
     Active Substance: FERROUS SULFATE
  9. VIGABATRIN [Concomitant]
  10. EPIDIOLEX SOL 100MG/ML [Concomitant]

REACTIONS (2)
  - Hospitalisation [None]
  - Therapy interrupted [None]
